FAERS Safety Report 10580306 (Version 1)
Quarter: 2014Q4

REPORT INFORMATION
  Report Type: Spontaneous
  Country: CZ (occurrence: CZ)
  Receive Date: 20141112
  Receipt Date: 20141112
  Transmission Date: 20150529
  Serious: Yes (Life-Threatening, Hospitalization, Other)
  Sender: FDA-Public Use
  Company Number: ALCN2014CZ006231

PATIENT
  Age: 86 Year
  Sex: Female
  Weight: 60 kg

DRUGS (5)
  1. UNITROPIC [Concomitant]
     Dosage: UNK
     Route: 047
  2. PERINDOPRIL ARGININE [Concomitant]
     Active Substance: PERINDOPRIL ARGININE
     Dosage: 1 DF, QD
  3. FLUORESCITE [Suspect]
     Active Substance: D+C YELLOW NO. 8
     Indication: FUNDOSCOPY
     Dosage: 5 ML, UNK
     Route: 051
  4. NEOSYNEPHRIN POS [Concomitant]
     Dosage: UNK
     Route: 047
  5. VASOCARDIN [Concomitant]
     Active Substance: METOPROLOL
     Dosage: 0.5 DF, QD

REACTIONS (4)
  - Tremor [Recovered/Resolved]
  - Vomiting [Recovered/Resolved]
  - Mixed incontinence [Recovered/Resolved]
  - Nausea [Recovered/Resolved]

NARRATIVE: CASE EVENT DATE: 20141015
